FAERS Safety Report 26119052 (Version 1)
Quarter: 2025Q4

REPORT INFORMATION
  Report Type: Spontaneous
  Country: TR (occurrence: TR)
  Receive Date: 20251204
  Receipt Date: 20251204
  Transmission Date: 20260117
  Serious: Yes (Other)
  Sender: ROCHE
  Company Number: TR-ROCHE-10000445050

PATIENT
  Sex: Female

DRUGS (1)
  1. PERJETA [Suspect]
     Active Substance: PERTUZUMAB
     Indication: Product used for unknown indication
     Route: 065

REACTIONS (14)
  - Diarrhoea [Unknown]
  - Hypoaesthesia [Unknown]
  - Back pain [Unknown]
  - Insomnia [Unknown]
  - Depressed mood [Unknown]
  - Fatigue [Unknown]
  - Suicidal ideation [Unknown]
  - Nasal congestion [Unknown]
  - Rhinorrhoea [Unknown]
  - Eye discharge [Unknown]
  - Erythema [Unknown]
  - Paraesthesia [Unknown]
  - Pain in extremity [Unknown]
  - Pruritus [Unknown]
